FAERS Safety Report 17242641 (Version 1)
Quarter: 2020Q1

REPORT INFORMATION
  Report Type: Spontaneous
  Country: US (occurrence: US)
  Receive Date: 20200107
  Receipt Date: 20200107
  Transmission Date: 20200409
  Serious: No
  Sender: FDA-Public Use
  Company Number: US-SA-2020SA004105

PATIENT
  Sex: Male

DRUGS (4)
  1. AVAPRO [Suspect]
     Active Substance: IRBESARTAN
     Route: 065
  2. ROSUVASTATIN CALCIUM. [Suspect]
     Active Substance: ROSUVASTATIN CALCIUM
     Route: 065
  3. ATORVASTATIN CALCIUM. [Suspect]
     Active Substance: ATORVASTATIN CALCIUM
     Route: 065
  4. PENICILLIN [PENICILLIN NOS] [Suspect]
     Active Substance: PENICILLIN
     Route: 065

REACTIONS (2)
  - Hypersensitivity [Unknown]
  - Drug ineffective [Unknown]
